FAERS Safety Report 7361944-4 (Version None)
Quarter: 2011Q1

REPORT INFORMATION
  Report Type: 
  Country: None (occurrence: None)
  Receive Date: 20110318
  Receipt Date: 20110308
  Transmission Date: 20110831
  Serious: Yes (Other)
  Sender: FDA-Public Use
  Company Number: PHHY2011JP20085

PATIENT
  Age: 78 Year
  Sex: Female

DRUGS (3)
  1. RALOXIFENE HCL [Suspect]
     Dosage: 60 MG, QD, FOR A HALF YEAR
     Dates: start: 20081001
  2. ALENDRONIC ACID [Suspect]
     Dosage: 5 MG, QD
     Dates: end: 20081001
  3. RISEDRONATE SODIUM [Suspect]
     Dosage: 2.5 MG, QD
     Dates: start: 20021101, end: 20041101

REACTIONS (1)
  - FEMUR FRACTURE [None]
